FAERS Safety Report 13111939 (Version 2)
Quarter: 2017Q2

REPORT INFORMATION
  Report Type: Spontaneous
  Country: FR (occurrence: FR)
  Receive Date: 20170113
  Receipt Date: 20170621
  Transmission Date: 20170830
  Serious: Yes (Hospitalization)
  Sender: FDA-Public Use
  Company Number: FR-ASTRAZENECA-2017SE02776

PATIENT
  Age: 55 Year
  Sex: Male

DRUGS (4)
  1. PROPOFOL. [Suspect]
     Active Substance: PROPOFOL
     Indication: SEDATION
     Dosage: NON-AZ PRODUCT
     Route: 042
     Dates: start: 201605
  2. REMIFENTANIL [Suspect]
     Active Substance: REMIFENTANIL
     Indication: ANALGESIC THERAPY
     Route: 065
     Dates: start: 201605
  3. IODIXANOL. [Suspect]
     Active Substance: IODIXANOL
     Indication: COMPUTERISED TOMOGRAM HEAD
     Route: 065
     Dates: start: 20160525
  4. INEXIUM [Suspect]
     Active Substance: ESOMEPRAZOLE
     Indication: PROPHYLAXIS AGAINST GASTROINTESTINAL ULCER
     Route: 048
     Dates: start: 201605

REACTIONS (1)
  - Acute generalised exanthematous pustulosis [Recovered/Resolved]

NARRATIVE: CASE EVENT DATE: 20160525
